FAERS Safety Report 7570773-8 (Version None)
Quarter: 2011Q2

REPORT INFORMATION
  Report Type: 
  Country: None (occurrence: None)
  Receive Date: 20110622
  Receipt Date: 20110622
  Transmission Date: 20111010
  Serious: No
  Sender: FDA-Public Use
  Company Number: None

PATIENT
  Age: 81 Year
  Sex: Female
  Weight: 43.9989 kg

DRUGS (1)
  1. NAMENDA [Suspect]
     Dosage: 1 PER DAY
     Dates: start: 20110516, end: 20110530

REACTIONS (2)
  - BACK DISORDER [None]
  - DRUG INEFFECTIVE [None]
